FAERS Safety Report 17923179 (Version 1)
Quarter: 2020Q2

REPORT INFORMATION
  Report Type: Spontaneous
  Country: US (occurrence: US)
  Receive Date: 20200622
  Receipt Date: 20200622
  Transmission Date: 20200714
  Serious: Yes (Disabling)
  Sender: FDA-Public Use
  Company Number: None

PATIENT
  Age: 57 Year
  Sex: Male
  Weight: 81 kg

DRUGS (3)
  1. MINERALS [Concomitant]
     Active Substance: MINERALS
  2. BACTRIM [Suspect]
     Active Substance: SULFAMETHOXAZOLE\TRIMETHOPRIM
     Indication: CELLULITIS
     Dosage: ?          QUANTITY:1 CAPSULE(S);?
     Route: 048
     Dates: start: 20160124, end: 20160130
  3. VITAMINS [Concomitant]
     Active Substance: VITAMINS

REACTIONS (6)
  - Diarrhoea [None]
  - Condition aggravated [None]
  - Headache [None]
  - Vitreous floaters [None]
  - Photopsia [None]
  - Intraocular pressure increased [None]

NARRATIVE: CASE EVENT DATE: 20160126
